FAERS Safety Report 19629279 (Version 1)
Quarter: 2021Q3

REPORT INFORMATION
  Report Type: Report from Study
  Country: CA (occurrence: CA)
  Receive Date: 20210728
  Receipt Date: 20210728
  Transmission Date: 20211014
  Serious: Yes (Other)
  Sender: FDA-Public Use
  Company Number: CA-PFIZER INC-2021894369

PATIENT
  Age: 48 Year
  Sex: Male
  Weight: 67 kg

DRUGS (14)
  1. NAPROXEN. [Concomitant]
     Active Substance: NAPROXEN
     Route: 065
  2. VOLTAREN [Concomitant]
     Active Substance: DICLOFENAC SODIUM
     Route: 061
  3. COSENTYX [Suspect]
     Active Substance: SECUKINUMAB
     Indication: PSORIATIC ARTHROPATHY
     Dosage: 300 MG, WEEKLY
     Route: 058
  4. COSENTYX [Suspect]
     Active Substance: SECUKINUMAB
     Indication: PSORIATIC ARTHROPATHY
     Route: 065
  5. LORAZEPAM. [Concomitant]
     Active Substance: LORAZEPAM
     Route: 048
  6. METHOTREXATE SODIUM. [Suspect]
     Active Substance: METHOTREXATE SODIUM
     Route: 048
  7. COSENTYX [Suspect]
     Active Substance: SECUKINUMAB
     Dosage: 300 MG, MONTHLY
     Route: 058
  8. CANNABIS SATIVA [Concomitant]
     Active Substance: CANNABIS SATIVA FLOWERING TOP
     Route: 065
  9. DESOXIMETASONE. [Concomitant]
     Active Substance: DESOXIMETASONE
     Route: 065
  10. HYDROMORPHONE [Concomitant]
     Active Substance: HYDROMORPHONE
     Route: 048
  11. PREDNISONE. [Concomitant]
     Active Substance: PREDNISONE
     Route: 048
  12. METHOTREXATE SODIUM. [Suspect]
     Active Substance: METHOTREXATE SODIUM
     Dosage: UNK
     Route: 065
  13. SIMPONI [Concomitant]
     Active Substance: GOLIMUMAB
     Dosage: UNK
     Route: 065
  14. PERCOCET [Concomitant]
     Active Substance: ACETAMINOPHEN\OXYCODONE HYDROCHLORIDE
     Route: 065

REACTIONS (11)
  - Onychomadesis [Unknown]
  - Mobility decreased [Unknown]
  - Psoriasis [Unknown]
  - Nausea [Unknown]
  - Weight decreased [Unknown]
  - C-reactive protein increased [Unknown]
  - Hypersensitivity [Unknown]
  - Joint swelling [Unknown]
  - Psoriatic arthropathy [Unknown]
  - Drug ineffective [Unknown]
  - Pain [Unknown]
